FAERS Safety Report 5621237-X (Version None)
Quarter: 2008Q1

REPORT INFORMATION
  Report Type: 
  Country: None (occurrence: None)
  Receive Date: 20080114
  Receipt Date: 20070416
  Transmission Date: 20080703
  Serious: Yes (Hospitalization)
  Sender: FDA-Public Use
  Company Number: A03200702645

PATIENT
  Age: 89 Year
  Sex: Female
  Weight: 58.96 kg

DRUGS (5)
  1. PLAVIX [Suspect]
     Indication: PROPHYLAXIS
     Dosage: 75 MG QD - ORAL
     Route: 048
     Dates: start: 20040101
  2. PLAVIX [Suspect]
     Indication: CARDIAC DISORDER
     Dosage: 75 MG QD - ORAL
     Route: 048
     Dates: start: 20061101, end: 20070301
  3. PLAVIX [Suspect]
     Indication: CEREBROVASCULAR ACCIDENT
     Dosage: 75 MG QD - ORAL
     Route: 048
     Dates: start: 20070401
  4. CLOPIDOGREL [Suspect]
     Indication: PROPHYLAXIS
     Dates: start: 20070301, end: 20070301
  5. PARACETAMOL [Concomitant]

REACTIONS (4)
  - DRY SKIN [None]
  - ECCHYMOSIS [None]
  - PRURITUS [None]
  - TRANSIENT ISCHAEMIC ATTACK [None]
